FAERS Safety Report 7367642-5 (Version None)
Quarter: 2011Q1

REPORT INFORMATION
  Report Type: 
  Country: None (occurrence: None)
  Receive Date: 20110322
  Receipt Date: 20100908
  Transmission Date: 20110831
  Serious: Yes (Hospitalization, Other)
  Sender: FDA-Public Use
  Company Number: US-BAYER-200943683NA

PATIENT
  Sex: Female
  Weight: 79.365 kg

DRUGS (44)
  1. YASMIN [Suspect]
     Dosage: UNK
     Dates: start: 20090301, end: 20090601
  2. OCELLA [Suspect]
     Dosage: UNK
     Dates: start: 20081001
  3. RANITIDINE [Concomitant]
     Indication: GASTRIC DISORDER
     Dosage: UNK
     Dates: start: 20070101
  4. TRAMADOL [Concomitant]
     Dosage: UNK
     Dates: start: 20060101
  5. PREDNISONE [Concomitant]
  6. UNCODEABLE ^UNCLASSIFIABLE^ [Concomitant]
  7. IBUPROFEN [Concomitant]
  8. YASMIN [Suspect]
     Indication: PRODUCT USED FOR UNKNOWN INDICATION
     Dosage: UNK
     Dates: start: 20050501, end: 20060401
  9. ZOLOFT [Concomitant]
     Indication: DEPRESSION
  10. PROMETHAZINE [Concomitant]
  11. PERMETHRIN [Concomitant]
  12. PROTONIX [Concomitant]
  13. SILVER SULFADIAZINE [Concomitant]
  14. UNCODEABLE ^UNCLASSIFIABLE^ [Concomitant]
     Indication: HYPERTENSION
  15. ZOLOFT [Concomitant]
     Indication: ANXIETY
     Dosage: UNK
     Dates: start: 20100301
  16. BUSPIRONE HCL [Concomitant]
  17. HYOSCYAMINE [Concomitant]
  18. RISPERDONE [Concomitant]
  19. FLUCONAZOLE [Concomitant]
  20. PROPRANOLOL [Concomitant]
  21. YASMIN [Suspect]
     Dosage: UNK
     Dates: start: 20060701
  22. YASMIN [Suspect]
     Dosage: UNK
     Dates: start: 20060901, end: 20080201
  23. YASMIN [Suspect]
     Dosage: UNK
     Dates: start: 20080401, end: 20080701
  24. I.V. SOLUTIONS [Concomitant]
     Indication: HYPERTENSION
  25. LEXAPRO [Concomitant]
  26. LOPERAMIDE [Concomitant]
  27. MICONAZOLE [Concomitant]
  28. HYDROXYZINE PAMOATE [Concomitant]
  29. VASOTEC [Concomitant]
     Indication: HYPERTENSION
  30. OCELLA [Suspect]
     Dosage: UNK
     Dates: start: 20080601
  31. MUPIROCIN [Concomitant]
  32. UNCODEABLE ^UNCLASSIFIABLE^ [Concomitant]
  33. CITALOPRAM HYDROBROMIDE [Concomitant]
  34. AMOXICILLIN AND CLAVULANATE POTASSIUM [Concomitant]
  35. CLONAZEPAM [Concomitant]
  36. PROPOX-N [Concomitant]
  37. ALPRAZOLAM [Concomitant]
  38. YAZ [Suspect]
     Indication: CONTRACEPTION
     Dosage: UNK
     Dates: end: 20080403
  39. RANITIDINE [Concomitant]
     Indication: MUSCLE SPASMS
  40. ZOLOFT [Concomitant]
     Indication: PANIC ATTACK
  41. HYDROCODONE BITARTRATE AND ACETAMINOPHEN [Concomitant]
  42. SERTRALINE HYDROCHLORIDE [Concomitant]
  43. FLUOXETINE [Concomitant]
  44. MECLIZINE [Concomitant]

REACTIONS (13)
  - NAUSEA [None]
  - PAIN [None]
  - VOMITING [None]
  - ANXIETY [None]
  - HYPOGLYCAEMIA [None]
  - PANCREATITIS [None]
  - TACHYCARDIA [None]
  - CHOLECYSTITIS CHRONIC [None]
  - DEPRESSION [None]
  - DIARRHOEA [None]
  - HYPERHIDROSIS [None]
  - CHOLELITHIASIS [None]
  - ABDOMINAL PAIN UPPER [None]
